FAERS Safety Report 5655166-2 (Version None)
Quarter: 2008Q1

REPORT INFORMATION
  Report Type: 
  Country: None (occurrence: None)
  Receive Date: 20080307
  Receipt Date: 20080227
  Transmission Date: 20080703
  Serious: Yes (Other)
  Sender: FDA-Public Use
  Company Number: CA-JNJFOC-20080207051

PATIENT
  Sex: Female
  Weight: 83 kg

DRUGS (10)
  1. REMICADE [Suspect]
     Route: 042
  2. REMICADE [Suspect]
     Route: 042
  3. REMICADE [Suspect]
     Route: 042
  4. REMICADE [Suspect]
     Route: 042
  5. REMICADE [Suspect]
     Route: 042
  6. REMICADE [Suspect]
     Route: 042
  7. REMICADE [Suspect]
     Indication: ANKYLOSING SPONDYLITIS
     Route: 042
  8. CELEBREX [Concomitant]
  9. PANTOPRAZOLE SODIUM [Concomitant]
  10. BENADRYL [Concomitant]
     Indication: PREMEDICATION
     Route: 048

REACTIONS (2)
  - HYSTERECTOMY [None]
  - MUSCLE OPERATION [None]
